FAERS Safety Report 18177110 (Version 1)
Quarter: 2020Q3

REPORT INFORMATION
  Report Type: Report from Study
  Country: FR (occurrence: FR)
  Receive Date: 20200820
  Receipt Date: 20200820
  Transmission Date: 20201103
  Serious: Yes (Other)
  Sender: FDA-Public Use
  Company Number: FR-EXELIXIS-XL18420029219

PATIENT

DRUGS (4)
  1. GLYCEROL/VASELINE/PARAFFINE EG [Concomitant]
     Dosage: UNK
  2. UREA. [Concomitant]
     Active Substance: UREA
     Dosage: UNK
  3. XL184 [Suspect]
     Active Substance: CABOZANTINIB
     Indication: HEPATOCELLULAR CARCINOMA
     Dosage: 60 MG, QD (EVERY 24 HOURS)
     Route: 048
     Dates: start: 20200326, end: 20200409
  4. LOPERAMIDE [Concomitant]
     Active Substance: LOPERAMIDE
     Dosage: UNK

REACTIONS (1)
  - Hepatocellular injury [Recovered/Resolved]

NARRATIVE: CASE EVENT DATE: 20200409
